FAERS Safety Report 5110583-4 (Version None)
Quarter: 2006Q3

REPORT INFORMATION
  Report Type: 
  Country: None (occurrence: None)
  Receive Date: 20060731
  Receipt Date: 20060612
  Transmission Date: 20061208
  Serious: No
  Sender: FDA-Public Use
  Company Number: 2006PV015509

PATIENT
  Age: 38 Year
  Sex: Male
  Weight: 79.8331 kg

DRUGS (7)
  1. BYETTA [Suspect]
     Indication: INSULIN RESISTANCE
     Dosage: 5 MCG;BID;SC
     Route: 058
     Dates: start: 20060607
  2. BYETTA [Suspect]
     Indication: METABOLIC SYNDROME
     Dosage: 5 MCG;BID;SC
     Route: 058
     Dates: start: 20060607
  3. PREVACID [Concomitant]
  4. ADVAIR DISKUS 100/50 [Concomitant]
  5. TRICOR [Concomitant]
  6. CARDIZEM [Concomitant]
  7. MICARDIS [Concomitant]

REACTIONS (5)
  - ASTHENIA [None]
  - DIZZINESS [None]
  - HEADACHE [None]
  - NAUSEA [None]
  - SENSATION OF FOREIGN BODY [None]
